FAERS Safety Report 10922200 (Version 4)
Quarter: 2015Q2

REPORT INFORMATION
  Report Type: Spontaneous
  Country: JP (occurrence: JP)
  Receive Date: 20150317
  Receipt Date: 20150626
  Transmission Date: 20150821
  Serious: Yes (Hospitalization)
  Sender: FDA-Public Use
  Company Number: JP-SA-2015SA030344

PATIENT
  Age: 51 Year
  Sex: Female
  Weight: 60.2 kg

DRUGS (8)
  1. PREDNISOLONE. [Suspect]
     Active Substance: PREDNISOLONE
     Indication: RHEUMATOID ARTHRITIS
     Dosage: DOSE AND FREQUENCY:2 MG IN THE MORNING AND 1 MG IN THE EVENING
     Route: 048
  2. ACTEMRA [Suspect]
     Active Substance: TOCILIZUMAB
     Indication: RHEUMATOID ARTHRITIS
     Route: 041
     Dates: start: 20140529, end: 20150216
  3. LOXOPROFEN [Suspect]
     Active Substance: LOXOPROFEN
     Indication: RHEUMATOID ARTHRITIS
     Route: 048
  4. BENIDIPINE [Suspect]
     Active Substance: BENIDIPINE
     Indication: ANGINA PECTORIS
     Dosage: STRENGTH:2 MG
     Route: 048
  5. FRANDOL TAPE [Suspect]
     Active Substance: ISOSORBIDE DINITRATE
     Indication: ANGINA PECTORIS
     Dosage: STRENGTH:40 MG?FORM:SACHET?DAILY DOSE:1 SACHET
     Route: 061
  6. CRESTOR [Suspect]
     Active Substance: ROSUVASTATIN CALCIUM
     Indication: DYSLIPIDAEMIA
     Dosage: STRENGTH:2.5 MG
     Route: 048
     Dates: end: 20150310
  7. ARAVA [Suspect]
     Active Substance: LEFLUNOMIDE
     Indication: RHEUMATOID ARTHRITIS
     Route: 048
     Dates: end: 20150209
  8. LOXOPROFEN [Suspect]
     Active Substance: LOXOPROFEN
     Indication: RHEUMATOID ARTHRITIS
     Route: 048

REACTIONS (4)
  - Blood alkaline phosphatase increased [None]
  - Aspartate aminotransferase increased [None]
  - Hepatic function abnormal [Not Recovered/Not Resolved]
  - Alanine aminotransferase increased [None]

NARRATIVE: CASE EVENT DATE: 20141121
